FAERS Safety Report 7472214-8 (Version None)
Quarter: 2011Q2

REPORT INFORMATION
  Report Type: 
  Country: None (occurrence: None)
  Receive Date: 20110511
  Receipt Date: 20110310
  Transmission Date: 20111010
  Serious: No
  Sender: FDA-Public Use
  Company Number: A0918329A

PATIENT
  Sex: Female

DRUGS (2)
  1. TYKERB [Suspect]
     Dosage: 1000MG PER DAY
     Route: 048
     Dates: start: 20110226
  2. TYKERB [Suspect]
     Dosage: 750MG PER DAY
     Route: 065
     Dates: start: 20110302, end: 20110405

REACTIONS (4)
  - INFLUENZA LIKE ILLNESS [None]
  - DIARRHOEA [None]
  - VOMITING [None]
  - PAIN [None]
